FAERS Safety Report 6509495-0 (Version None)
Quarter: 2009Q4

REPORT INFORMATION
  Report Type: 
  Country: None (occurrence: None)
  Receive Date: 20091222
  Receipt Date: 20091215
  Transmission Date: 20100525
  Serious: Yes (Life-Threatening)
  Sender: FDA-Public Use
  Company Number: TR-CELGENEUS-161-C5013-09121325

PATIENT
  Sex: Male
  Weight: 82 kg

DRUGS (5)
  1. CC-5013 [Suspect]
     Indication: MULTIPLE MYELOMA
     Route: 048
     Dates: start: 20091009
  2. DELCORT [Suspect]
     Indication: MULTIPLE MYELOMA
     Route: 065
     Dates: start: 20091009
  3. NEURONTIN [Concomitant]
     Indication: DRUG USE FOR UNKNOWN INDICATION
     Route: 065
     Dates: start: 20090611
  4. GLUCOBAY [Concomitant]
     Indication: DRUG USE FOR UNKNOWN INDICATION
     Route: 065
     Dates: start: 20090209
  5. ASPIRIN [Concomitant]
     Route: 065
     Dates: start: 20091008

REACTIONS (1)
  - INFLUENZA [None]
